FAERS Safety Report 21419355 (Version 1)
Quarter: 2022Q4

REPORT INFORMATION
  Report Type: Spontaneous
  Country: US (occurrence: US)
  Receive Date: 20221006
  Receipt Date: 20221006
  Transmission Date: 20230113
  Serious: No
  Sender: FDA-Public Use
  Company Number: US-BRISTOL-MYERS SQUIBB COMPANY-2022-115509

PATIENT
  Age: 72 Year
  Sex: Male
  Weight: 88.4 kg

DRUGS (1)
  1. REVLIMID [Suspect]
     Active Substance: LENALIDOMIDE
     Indication: Plasma cell myeloma
     Dosage: FREQ -  DAILY FOR 14DAYS
     Route: 048

REACTIONS (3)
  - Full blood count decreased [Recovering/Resolving]
  - White blood cell count decreased [Unknown]
  - Off label use [Unknown]
